FAERS Safety Report 9484691 (Version 1)
Quarter: 2013Q3

REPORT INFORMATION
  Report Type: Spontaneous
  Country: CA (occurrence: CA)
  Receive Date: 20130828
  Receipt Date: 20130828
  Transmission Date: 20140515
  Serious: Yes (Hospitalization)
  Sender: FDA-Public Use
  Company Number: CA-AMGEN-KDL435261

PATIENT
  Age: 63 Year
  Sex: Female

DRUGS (3)
  1. ENBREL [Suspect]
     Indication: PSORIATIC ARTHROPATHY
     Dosage: UNK UNK, QWK
     Route: 065
     Dates: start: 20051004
  2. UNSPECIFIED MEDICATION [Concomitant]
     Dosage: UNK UNK, UNK
  3. CLONAZEPAM [Concomitant]

REACTIONS (5)
  - Uterine cancer [Unknown]
  - Anxiety [Unknown]
  - Musculoskeletal stiffness [Not Recovered/Not Resolved]
  - Incision site pain [Unknown]
  - Blister [Not Recovered/Not Resolved]
